FAERS Safety Report 21927210 (Version 5)
Quarter: 2023Q2

REPORT INFORMATION
  Report Type: Report from Study
  Country: AE (occurrence: None)
  Receive Date: 20230130
  Receipt Date: 20230628
  Transmission Date: 20230721
  Serious: Yes (Hospitalization)
  Sender: FDA-Public Use
  Company Number: 2023A020117

PATIENT
  Age: 58 Year
  Sex: Female
  Weight: 78.5 kg

DRUGS (11)
  1. EVUSHELD [Suspect]
     Active Substance: CILGAVIMAB\TIXAGEVIMAB
     Indication: COVID-19 treatment
     Dosage: 3 ML/ONCE/SINGLE ADMINISTRATION (DOSE WILL BE ADMINISTERED AS 2 SEPARATE SEQUENTIAL IM INJECTIONS...
     Route: 030
     Dates: start: 20221108
  2. ALLOPURINOL [Concomitant]
     Active Substance: ALLOPURINOL
     Indication: Myelodysplastic syndrome
     Route: 048
     Dates: start: 20221130, end: 20221201
  3. DIPHENHYDRAMINE [Concomitant]
     Active Substance: DIPHENHYDRAMINE
     Indication: Acute myeloid leukaemia
     Route: 042
     Dates: start: 20221130, end: 20221130
  4. DOCUSATE [Concomitant]
     Active Substance: DOCUSATE
     Indication: Constipation
     Route: 048
     Dates: start: 20221130, end: 20221201
  5. HYDROCORTISONE SODIUM SUCCINATE [Concomitant]
     Active Substance: HYDROCORTISONE SODIUM SUCCINATE
     Indication: Acute myeloid leukaemia
     Route: 042
     Dates: start: 20221130, end: 20221130
  6. OCULAR LUBRICANT (TEARS NATURALE) [Concomitant]
     Indication: Dry eye
     Route: 050
     Dates: start: 20221130, end: 20221201
  7. OLANZAPINE [Concomitant]
     Active Substance: OLANZAPINE
     Indication: Bipolar disorder
     Route: 048
     Dates: start: 20221130, end: 20221201
  8. SIMETHICONE (DIMETHICONE) [Concomitant]
     Active Substance: DIMETHICONE
     Indication: Acute myeloid leukaemia
     Route: 048
     Dates: start: 20221130, end: 20221201
  9. VENETOCLAX [Concomitant]
     Active Substance: VENETOCLAX
     Indication: Acute myeloid leukaemia
     Route: 048
     Dates: start: 20221130, end: 20221201
  10. HEMORRHOID CREAM [Concomitant]
     Indication: Constipation
     Route: 054
     Dates: start: 20221130, end: 20221201
  11. LACTULOSE [Concomitant]
     Active Substance: LACTULOSE
     Indication: Constipation
     Route: 048
     Dates: start: 20221130, end: 20221201

REACTIONS (2)
  - Thrombocytopenia [Recovered/Resolved]
  - Anaemia [Recovered/Resolved]

NARRATIVE: CASE EVENT DATE: 20221130
